FAERS Safety Report 8139646-6 (Version None)
Quarter: 2012Q1

REPORT INFORMATION
  Report Type: 
  Country: None (occurrence: None)
  Receive Date: 20120215
  Receipt Date: 20120210
  Transmission Date: 20120608
  Serious: Yes (Other)
  Sender: FDA-Public Use
  Company Number: US-PFIZER INC-2011072796

PATIENT
  Sex: Female
  Weight: 58.05 kg

DRUGS (19)
  1. ENTOCORT EC [Concomitant]
     Dosage: 3 MG, 1X/DAY
  2. CO-Q-10 [Concomitant]
     Dosage: 100 MG, UNK
  3. VITAMIN B COMPLEX CAP [Concomitant]
     Dosage: UNK
  4. CORTEF [Concomitant]
     Dosage: 20 MG, UNK
  5. HOMOCYSTEINE THIOLACTONE [Concomitant]
  6. MAGNESIUM GLUCEPTATE [Concomitant]
     Dosage: 200 MG, UNK
  7. MILK THISTLE [Concomitant]
     Dosage: UNK
  8. THYROID TAB [Concomitant]
     Dosage: 30 MG, UNK
  9. BETIMOL [Concomitant]
     Dosage: 0.25 %, UNK
  10. IMMUNOGLOBULIN HUMAN NORMAL [Concomitant]
     Dosage: UNK
  11. BETAXOLOL [Concomitant]
     Dosage: UNK
  12. ZINC [Concomitant]
     Dosage: 30 MG, UNK
  13. EPINEPHRINE [Concomitant]
  14. NISOLDIPINE [Concomitant]
     Dosage: 8.5 MG, UNK
  15. GENOTROPIN [Suspect]
     Dosage: 0.8 MG, 1X/DAY
     Route: 058
  16. LOSARTAN POTASSIUM [Concomitant]
     Dosage: 25 MG, UNK
  17. VITAMIN D [Concomitant]
     Dosage: UNK
  18. PROBIOTICA [Concomitant]
     Dosage: UNK
  19. HYDROCORTISONE [Concomitant]
     Dosage: 2.5 MG, IN PM

REACTIONS (11)
  - OEDEMA PERIPHERAL [None]
  - SWELLING FACE [None]
  - INSOMNIA [None]
  - PRURITUS [None]
  - SINUSITIS [None]
  - NASOPHARYNGITIS [None]
  - ARTHRALGIA [None]
  - ABDOMINAL PAIN UPPER [None]
  - WEIGHT DECREASED [None]
  - BLOOD PRESSURE INCREASED [None]
  - VOMITING [None]
